FAERS Safety Report 9617406 (Version 4)
Quarter: 2013Q4

REPORT INFORMATION
  Report Type: Report from Study
  Country: US (occurrence: US)
  Receive Date: 20131011
  Receipt Date: 20131129
  Transmission Date: 20140711
  Serious: Yes (Hospitalization)
  Sender: FDA-Public Use
  Company Number: US-JNJFOC-20131004215

PATIENT
  Age: 17 Year
  Sex: Female
  Weight: 57.4 kg

DRUGS (2)
  1. REMICADE [Suspect]
     Indication: CROHN^S DISEASE
     Route: 042
     Dates: start: 20111201
  2. VITAMIN D [Concomitant]
     Route: 065

REACTIONS (1)
  - Constipation [Recovered/Resolved]
